FAERS Safety Report 7817191-2 (Version None)
Quarter: 2011Q4

REPORT INFORMATION
  Report Type: 
  Country: None (occurrence: None)
  Receive Date: 20111017
  Receipt Date: 20111017
  Transmission Date: 20120403
  Serious: No
  Sender: FDA-Public Use
  Company Number: None

PATIENT
  Age: 20 Year
  Sex: Female
  Weight: 54.431 kg

DRUGS (1)
  1. CYCLOBENZAPRINE [Suspect]
     Indication: BACK PAIN
     Dosage: 1 TABLET
     Route: 048
     Dates: start: 20110702, end: 20110704

REACTIONS (3)
  - SWOLLEN TONGUE [None]
  - HEADACHE [None]
  - SOMNOLENCE [None]
